FAERS Safety Report 4704051-9 (Version None)
Quarter: 2005Q2

REPORT INFORMATION
  Report Type: 
  Country: None (occurrence: None)
  Receive Date: 20050630
  Receipt Date: 20050621
  Transmission Date: 20051028
  Serious: Yes (Hospitalization)
  Sender: FDA-Public Use
  Company Number: HU-ROCHE-408341

PATIENT
  Age: 25 Year
  Sex: Female

DRUGS (3)
  1. ROACCUTAN [Suspect]
     Indication: ACNE
     Dosage: STRENGH: 10 MG.
     Route: 048
     Dates: start: 20040915, end: 20050315
  2. ROACCUTAN [Suspect]
     Dosage: STRENGH: 20MG
     Route: 048
     Dates: start: 20050315
  3. DIANE 35 [Concomitant]
     Indication: CONTRACEPTION
     Route: 048
     Dates: start: 20040915

REACTIONS (3)
  - DEPRESSION [None]
  - OVARIAN CYST [None]
  - SUICIDE ATTEMPT [None]
